FAERS Safety Report 23382258 (Version 2)
Quarter: 2024Q1

REPORT INFORMATION
  Report Type: Spontaneous
  Country: CN (occurrence: CN)
  Receive Date: 20240109
  Receipt Date: 20240306
  Transmission Date: 20240410
  Serious: Yes (Hospitalization)
  Sender: FDA-Public Use
  Company Number: CN-TEVA-VS-3140892

PATIENT
  Age: 73 Year
  Sex: Male

DRUGS (6)
  1. CLOPIDOGREL [Suspect]
     Active Substance: CLOPIDOGREL BISULFATE
     Indication: Prophylaxis
     Route: 065
     Dates: start: 202007
  2. POLIVY [Concomitant]
     Active Substance: POLATUZUMAB VEDOTIN-PIIQ
     Indication: Product used for unknown indication
     Route: 065
  3. TAMSULOSIN [Concomitant]
     Active Substance: TAMSULOSIN
     Indication: Product used for unknown indication
     Dosage: RECEIVED SUSTAINED RELEASE CAPSULE
     Route: 065
     Dates: start: 202007
  4. METHYLCOBALAMIN [Concomitant]
     Active Substance: METHYLCOBALAMIN
     Indication: Vitamin supplementation
     Dosage: TIME INTERVAL: 0.33333333 DAYS: RECEIVED 3 TIMES A DAY
     Route: 065
     Dates: start: 202007
  5. ATORVASTATIN [Concomitant]
     Active Substance: ATORVASTATIN
     Indication: Product used for unknown indication
     Dosage: RECEIVED AT NIGHT
     Route: 065
     Dates: start: 202007
  6. ASPIRIN [Concomitant]
     Active Substance: ASPIRIN
     Indication: Anticoagulant therapy
     Route: 065
     Dates: start: 202007

REACTIONS (2)
  - Acquired haemophilia [Recovered/Resolved]
  - Anaemia [Unknown]
